FAERS Safety Report 5004447-4 (Version None)
Quarter: 2006Q2

REPORT INFORMATION
  Report Type: 
  Country: None (occurrence: None)
  Receive Date: 20060517
  Receipt Date: 20050324
  Transmission Date: 20061013
  Serious: Yes (Hospitalization)
  Sender: FDA-Public Use
  Company Number: JP-ROCHE-399768

PATIENT
  Age: 7 Year
  Sex: Male

DRUGS (25)
  1. MYCOPHENOLATE MOFETIL [Suspect]
     Route: 048
     Dates: start: 20011207, end: 20011219
  2. MYCOPHENOLATE MOFETIL [Suspect]
     Route: 048
     Dates: start: 20020208, end: 20020331
  3. MYCOPHENOLATE MOFETIL [Suspect]
     Route: 048
     Dates: start: 20021028, end: 20030227
  4. MYCOPHENOLATE MOFETIL [Suspect]
     Route: 048
     Dates: start: 20031130, end: 20040617
  5. MYCOPHENOLATE MOFETIL [Suspect]
     Route: 048
     Dates: start: 20040813, end: 20040827
  6. MYCOPHENOLATE MOFETIL [Suspect]
     Route: 048
     Dates: start: 20040828
  7. NEORAL [Suspect]
     Route: 048
     Dates: start: 20011029, end: 20011031
  8. NEORAL [Suspect]
     Route: 048
     Dates: start: 20011103, end: 20011120
  9. NEORAL [Suspect]
     Route: 048
     Dates: start: 20011127, end: 20030227
  10. NEORAL [Suspect]
     Route: 048
     Dates: start: 20040706
  11. SANDIMMUNE [Suspect]
     Route: 041
     Dates: start: 20011031, end: 20011103
  12. SANDIMMUNE [Suspect]
     Route: 041
     Dates: start: 20011120, end: 20011127
  13. PREDONINE [Suspect]
     Route: 048
     Dates: start: 20040630, end: 20040713
  14. PREDONINE [Suspect]
     Route: 048
     Dates: start: 20040714, end: 20040726
  15. MEDROL [Suspect]
     Route: 048
     Dates: start: 20011106, end: 20011126
  16. MEDROL [Suspect]
     Route: 048
     Dates: start: 20011129, end: 20030227
  17. MEDROL [Suspect]
     Dosage: RANGE 0-4MG
     Route: 048
     Dates: start: 20030421, end: 20040629
  18. MEDROL [Suspect]
     Route: 048
     Dates: start: 20040727
  19. ENDOXAN [Suspect]
     Route: 048
     Dates: start: 20011021, end: 20011203
  20. SPANIDIN [Suspect]
     Route: 041
     Dates: start: 20011031, end: 20011106
  21. SOLU-MEDROL [Concomitant]
     Dosage: STOPPED ON 5 AND RESTARTED ON 26 NOVEMBER 2001 AT 200 MG ONCE DAILY.
     Route: 041
     Dates: start: 20011031, end: 20011128
  22. PENICILLIN G [Concomitant]
     Route: 048
     Dates: start: 20011119, end: 20030227
  23. THYRADIN [Concomitant]
     Route: 048
     Dates: start: 20011101, end: 20030227
  24. DEPAKENE [Concomitant]
     Route: 048
     Dates: start: 20011101, end: 20030227
  25. ACYCLOVIR [Concomitant]
     Route: 048
     Dates: start: 20011221, end: 20020228

REACTIONS (6)
  - ABDOMINAL PAIN LOWER [None]
  - ANURIA [None]
  - CYTOMEGALOVIRUS INFECTION [None]
  - DECUBITUS ULCER [None]
  - EPSTEIN-BARR VIRUS INFECTION [None]
  - MYELITIS [None]
